FAERS Safety Report 19061655 (Version 2)
Quarter: 2021Q2

REPORT INFORMATION
  Report Type: Spontaneous
  Country: JP (occurrence: JP)
  Receive Date: 20210326
  Receipt Date: 20210517
  Transmission Date: 20210717
  Serious: Yes (Life-Threatening, Other)
  Sender: FDA-Public Use
  Company Number: JP-ASTRAZENECA-2021A174750

PATIENT
  Age: 71 Year
  Sex: Male

DRUGS (6)
  1. CISPLATIN. [Concomitant]
     Active Substance: CISPLATIN
     Indication: SMALL CELL LUNG CANCER
     Dosage: DOSE UNKNOWN
     Route: 041
  2. IMFINZI [Suspect]
     Active Substance: DURVALUMAB
     Indication: SMALL CELL LUNG CANCER
     Dosage: DOSE UNKNOWN
     Route: 041
  3. IMFINZI [Suspect]
     Active Substance: DURVALUMAB
     Indication: SMALL CELL LUNG CANCER
     Dosage: DOSE UNKNOWN
     Route: 041
  4. CISPLATIN. [Concomitant]
     Active Substance: CISPLATIN
     Indication: SMALL CELL LUNG CANCER
     Dosage: DOSE UNKNOWN
     Route: 041
  5. ETOPOSIDE. [Concomitant]
     Active Substance: ETOPOSIDE
     Indication: SMALL CELL LUNG CANCER
     Dosage: DOSE UNKNOWN, ON DAY 1, 2 AND 3 OF EACH CYCLE
     Route: 041
  6. ETOPOSIDE. [Concomitant]
     Active Substance: ETOPOSIDE
     Indication: SMALL CELL LUNG CANCER
     Dosage: DOSE UNKNOWN, ON DAY 1, 2 AND 3 OF EACH CYCLE
     Route: 041

REACTIONS (5)
  - Gastrointestinal toxicity [Unknown]
  - Rash [Unknown]
  - Neutrophil count decreased [Unknown]
  - Alopecia [Unknown]
  - Myelosuppression [Unknown]
